FAERS Safety Report 6845098-6 (Version None)
Quarter: 2010Q3

REPORT INFORMATION
  Report Type: 
  Country: None (occurrence: None)
  Receive Date: 20100715
  Receipt Date: 20070812
  Transmission Date: 20110219
  Serious: No
  Sender: FDA-Public Use
  Company Number: US-PFIZER INC-2007068128

PATIENT
  Sex: Male
  Weight: 95.3 kg

DRUGS (4)
  1. CHANTIX [Suspect]
     Indication: SMOKING CESSATION THERAPY
     Dates: start: 20070811
  2. TOPROL-XL [Concomitant]
  3. MULTI-VITAMINS [Concomitant]
  4. IRON [Concomitant]

REACTIONS (1)
  - ABDOMINAL DISCOMFORT [None]
